FAERS Safety Report 25979780 (Version 1)
Quarter: 2025Q4

REPORT INFORMATION
  Report Type: Report from Study
  Country: US (occurrence: US)
  Receive Date: 20251030
  Receipt Date: 20251030
  Transmission Date: 20260118
  Serious: Yes (Other)
  Sender: BAYER HEALTHCARE PHARMACEUTICALS INC.
  Company Number: US-BAYER-2025A142852

PATIENT
  Age: 60 Year
  Sex: Male

DRUGS (33)
  1. STIVARGA [Suspect]
     Active Substance: REGORAFENIB MONOHYDRATE
     Indication: Colorectal cancer metastatic
     Dosage: 80 MG, QD
     Route: 048
     Dates: start: 20251003, end: 20251017
  2. ASCORBIC ACID [Concomitant]
     Active Substance: ASCORBIC ACID
  3. ATORVASTATIN [Concomitant]
     Active Substance: ATORVASTATIN
  4. BACLOFEN [Concomitant]
     Active Substance: BACLOFEN
  5. CALCITONIN [Concomitant]
     Active Substance: CALCITONIN
  6. CALCIUM CARBONATE [Concomitant]
     Active Substance: CALCIUM CARBONATE
  7. CARBOXYMETHYLCELLULOSE [Concomitant]
     Active Substance: CARBOXYMETHYLCELLULOSE
  8. DULOXETINE [Concomitant]
     Active Substance: DULOXETINE
  9. ELIQUIS [Concomitant]
     Active Substance: APIXABAN
  10. FAMOTIDINE [Concomitant]
     Active Substance: FAMOTIDINE
  11. FERROUS GLUCONATE [Concomitant]
     Active Substance: FERROUS GLUCONATE
  12. SACCHAROMYCES CEREVISIAE [Concomitant]
     Active Substance: SACCHAROMYCES CEREVISIAE
  13. FLUTICASONE [Concomitant]
     Active Substance: FLUTICASONE
  14. GABAPENTIN [Concomitant]
     Active Substance: GABAPENTIN
  15. LACTOSE [Concomitant]
     Active Substance: LACTOSE
  16. LOPERAMIDE [Concomitant]
     Active Substance: LOPERAMIDE
  17. LORATADINE [Concomitant]
     Active Substance: LORATADINE
  18. MAGNESIUM OXIDE [Concomitant]
     Active Substance: MAGNESIUM OXIDE
  19. MELATONIN [Concomitant]
     Active Substance: MELATONIN
  20. METHOCARBAMOL [Concomitant]
     Active Substance: METHOCARBAMOL
  21. MORPHINE [Concomitant]
     Active Substance: MORPHINE
  22. NALOXONE [Concomitant]
     Active Substance: NALOXONE
  23. OXYCODONE [Concomitant]
     Active Substance: OXYCODONE
  24. PANTOPRAZOLE [Concomitant]
     Active Substance: PANTOPRAZOLE
  25. PROCHLORPERAZINE [Concomitant]
     Active Substance: PROCHLORPERAZINE
  26. SENNOSIDES [Concomitant]
     Active Substance: SENNOSIDES
  27. Tab a vite [Concomitant]
  28. TAMSULOSIN [Concomitant]
     Active Substance: TAMSULOSIN
  29. TERIPARATIDE [Concomitant]
     Active Substance: TERIPARATIDE
  30. VITAMIN D3 [Concomitant]
     Active Substance: CHOLECALCIFEROL
  31. ZOFRAN [Concomitant]
     Active Substance: ONDANSETRON HYDROCHLORIDE
  32. CALCIUM\VITAMIN D [Concomitant]
     Active Substance: CALCIUM\VITAMIN D
  33. DOCUSATE SODIUM [Concomitant]
     Active Substance: DOCUSATE SODIUM

REACTIONS (3)
  - Neuropathy peripheral [Recovering/Resolving]
  - Abdominal pain upper [Recovering/Resolving]
  - Product use issue [None]

NARRATIVE: CASE EVENT DATE: 20251001
